FAERS Safety Report 5548918-0 (Version None)
Quarter: 2007Q4

REPORT INFORMATION
  Report Type: 
  Country: None (occurrence: None)
  Receive Date: 20071203
  Receipt Date: 20071119
  Transmission Date: 20080405
  Serious: Yes (Death, Hospitalization)
  Sender: FDA-Public Use
  Company Number: THYM-11555

PATIENT
  Age: 57 Year
  Sex: Male

DRUGS (5)
  1. THYMOGLOBULIN [Suspect]
     Indication: PROPHYLAXIS AGAINST TRANSPLANT REJECTION
     Dosage: 25 MG QD IV
     Route: 042
     Dates: start: 20070519, end: 20070528
  2. CYCLOSPORINE [Concomitant]
  3. MYCOPHENOLATE MOFETIL [Concomitant]
  4. URBASON [Concomitant]
  5. CYTOTECT [Concomitant]

REACTIONS (10)
  - CYTOMEGALOVIRUS INFECTION [None]
  - HAEMODIALYSIS [None]
  - LEUKOPENIA [None]
  - MULTI-ORGAN FAILURE [None]
  - NO THERAPEUTIC RESPONSE [None]
  - PNEUMOCYSTIS JIROVECI PNEUMONIA [None]
  - PNEUMONIA PRIMARY ATYPICAL [None]
  - SEPTIC SHOCK [None]
  - TRANSPLANT REJECTION [None]
  - URINARY TRACT INFECTION [None]
